FAERS Safety Report 5848370-1 (Version None)
Quarter: 2008Q3

REPORT INFORMATION
  Report Type: 
  Country: None (occurrence: None)
  Receive Date: 20080818
  Receipt Date: 20080807
  Transmission Date: 20090109
  Serious: Yes (Hospitalization, Other)
  Sender: FDA-Public Use
  Company Number: SE-JNJFOC-20080502414

PATIENT
  Age: 18 Year
  Sex: Male

DRUGS (6)
  1. REMICADE [Suspect]
     Route: 042
  2. REMICADE [Suspect]
     Dosage: DOSE 5 AFTER } 8 WEEKS INTERMISSION
     Route: 042
  3. REMICADE [Suspect]
     Indication: CROHN'S DISEASE
     Dosage: DOSES 1 - 4
     Route: 042
  4. PREDNISOLONE [Concomitant]
  5. ASACOL [Concomitant]
  6. OMEPRAZOLE [Concomitant]

REACTIONS (2)
  - CEREBRAL INFARCTION [None]
  - DRUG INEFFECTIVE [None]
